FAERS Safety Report 25929936 (Version 1)
Quarter: 2025Q4

REPORT INFORMATION
  Report Type: Spontaneous
  Country: US (occurrence: None)
  Receive Date: 20251015
  Receipt Date: 20251015
  Transmission Date: 20260118
  Serious: No
  Sender: FDA-CTU
  Company Number: None

PATIENT

DRUGS (3)
  1. TASIGNA [Suspect]
     Active Substance: NILOTINIB
     Route: 048
  2. DANZITEN [Suspect]
     Active Substance: NILOTINIB
     Route: 048
  3. DANZITEN [Suspect]
     Active Substance: NILOTINIB
     Route: 048

REACTIONS (3)
  - Product substitution issue [None]
  - Product name confusion [None]
  - Product name confusion [None]
